FAERS Safety Report 9021940 (Version 1)
Quarter: 2013Q1

REPORT INFORMATION
  Report Type: Spontaneous
  Country: US (occurrence: US)
  Receive Date: 20130119
  Receipt Date: 20130119
  Transmission Date: 20140127
  Serious: No
  Sender: FDA-Public Use
  Company Number: US-ALLERGAN-1201522US

PATIENT
  Age: 45 Year
  Sex: Female

DRUGS (1)
  1. BOTOX COSMETIC [Suspect]
     Indication: SKIN WRINKLING
     Dosage: 34 UNITS, SINGLE; 20 UNITS TO GLABELLA, 5 UNITS TO EACH CROW^S FEET, AND 4 UNITS TO FRONTALIS
     Route: 030
     Dates: start: 20120122, end: 20120122

REACTIONS (2)
  - Lacrimation increased [Unknown]
  - Eyelid ptosis [Unknown]
